FAERS Safety Report 9542246 (Version 1)
Quarter: 2013Q2

REPORT INFORMATION
  Report Type: Spontaneous
  Country: US (occurrence: None)
  Receive Date: 20130524
  Receipt Date: 20130524
  Transmission Date: 20140414
  Serious: Yes (Other)
  Sender: FDA-Public Use
  Company Number: PHEH2012US025223

PATIENT
  Sex: Male

DRUGS (8)
  1. GILENYA [Suspect]
     Route: 048
  2. DOXAZOSIN(DOXAZOSIN) [Concomitant]
  3. BACLOFEN(BACLOFEN) [Concomitant]
  4. IBUPROFEN(IBUPROFEN) [Concomitant]
  5. AMPYRA(FAMPRIDINE) [Concomitant]
  6. VITAMIN D3(COLECALCIFEROL) [Concomitant]
  7. FLUOXETINE (FLUOXETINE) [Concomitant]
  8. SIMVASTATIN (SIMVASTATIN) [Concomitant]

REACTIONS (6)
  - Memory impairment [None]
  - Bladder discomfort [None]
  - Abdominal discomfort [None]
  - Hypoaesthesia [None]
  - Vision blurred [None]
  - Paraesthesia [None]
